FAERS Safety Report 6498409 (Version 2)
Quarter: 2014Q1

REPORT INFORMATION
  Report Type: Spontaneous
  Country: FR (occurrence: FR)
  Receive Date: 20071213
  Receipt Date: 20140120
  Transmission Date: 20141002
  Serious: Yes (Life-Threatening, Hospitalization, Other)
  Sender: FDA-Public Use
  Company Number: FR-BRISTOL-MYERS SQUIBB COMPANY-14009948

PATIENT
  Age: 64 Year
  Sex: Female

DRUGS (9)
  1. BARACLUDE TABS 0.5 MG [Suspect]
     Dosage: INTERR ON 11DEC2007
     Dates: start: 20070801
  2. MODURETIC [Concomitant]
     Route: 048
     Dates: start: 20070301, end: 20071201
  3. CAPTOPRIL [Concomitant]
     Route: 048
     Dates: end: 20071201
  4. ATENOLOL [Concomitant]
     Route: 048
     Dates: end: 20071201
  5. AMIKLIN [Concomitant]
     Dates: start: 200712
  6. ROCEPHINE [Concomitant]
     Dates: start: 200712
  7. ADEFOVIR [Concomitant]
     Route: 048
     Dates: start: 20020101, end: 20040301
  8. HEPSERA [Concomitant]
     Route: 048
     Dates: start: 20070301, end: 20070801
  9. ZEFFIX [Concomitant]
     Route: 048
     Dates: start: 20040301, end: 20070801

REACTIONS (2)
  - Metabolic acidosis [Recovered/Resolved]
  - Overdose [Recovering/Resolving]
